FAERS Safety Report 22345725 (Version 1)
Quarter: 2023Q2

REPORT INFORMATION
  Report Type: Spontaneous
  Country: US (occurrence: None)
  Receive Date: 20230518
  Receipt Date: 20230518
  Transmission Date: 20230722
  Serious: No
  Sender: FDA-Public Use
  Company Number: None

PATIENT
  Sex: Female

DRUGS (11)
  1. VERZENIO [Suspect]
     Active Substance: ABEMACICLIB
     Dosage: 1T BID PO
     Route: 048
     Dates: start: 20230425
  2. IBRANCE [Concomitant]
     Active Substance: PALBOCICLIB
  3. QC TUMERIC COMPLEX [Concomitant]
  4. BIOTIN [Concomitant]
     Active Substance: BIOTIN
  5. CYV NATURAL FISH OIL [Concomitant]
  6. LORATADINE [Concomitant]
     Active Substance: LORATADINE
  7. CRANBERRY ORAL [Concomitant]
  8. MINERALS\VITAMINS [Concomitant]
     Active Substance: MINERALS\VITAMINS
  9. ROSUVASTATIN [Concomitant]
     Active Substance: ROSUVASTATIN
  10. NORVASC [Concomitant]
     Active Substance: AMLODIPINE BESYLATE
  11. PERCOCET [Concomitant]
     Active Substance: ACETAMINOPHEN\OXYCODONE HYDROCHLORIDE

REACTIONS (1)
  - Disease progression [None]
